FAERS Safety Report 25486663 (Version 4)
Quarter: 2025Q3

REPORT INFORMATION
  Report Type: Spontaneous
  Country: EU (occurrence: EU)
  Receive Date: 20250627
  Receipt Date: 20250828
  Transmission Date: 20251020
  Serious: Yes (Hospitalization, Other)
  Sender: AUROBINDO
  Company Number: EU-ACRAF-2025-038099

PATIENT
  Age: 11 Year
  Sex: Female

DRUGS (3)
  1. IBUPROFEN [Suspect]
     Active Substance: IBUPROFEN
     Indication: Pyrexia
     Route: 065
  2. IBUPROFEN [Suspect]
     Active Substance: IBUPROFEN
     Indication: Upper respiratory tract inflammation
  3. IBUPROFEN [Suspect]
     Active Substance: IBUPROFEN
     Indication: Pyrexia

REACTIONS (6)
  - Gastroduodenal haemorrhage [Recovered/Resolved]
  - Gastric mucosal lesion [Recovered/Resolved]
  - Condition aggravated [Recovered/Resolved]
  - Gastrointestinal haemorrhage [Unknown]
  - Intentional product misuse [Unknown]
  - Product use issue [Unknown]
